FAERS Safety Report 16338567 (Version 1)
Quarter: 2019Q2

REPORT INFORMATION
  Report Type: Spontaneous
  Country: FR (occurrence: FR)
  Receive Date: 20190521
  Receipt Date: 20190521
  Transmission Date: 20190711
  Serious: Yes (Hospitalization)
  Sender: FDA-Public Use
  Company Number: FR-NAPPMUNDI-GBR-2019-0066572

PATIENT
  Age: 80 Year
  Sex: Female

DRUGS (18)
  1. PRAVASTATINE [Concomitant]
     Active Substance: PRAVASTATIN
  2. LYRICA [Concomitant]
     Active Substance: PREGABALIN
  3. NOCTAMIDE [Concomitant]
     Active Substance: LORMETAZEPAM
  4. HUMALOG [Concomitant]
     Active Substance: INSULIN LISPRO
  5. KARDEGIC [Concomitant]
     Active Substance: ASPIRIN DL-LYSINE
  6. PREDNISONE. [Concomitant]
     Active Substance: PREDNISONE
  7. DEXERYL                            /00557601/ [Concomitant]
     Active Substance: CHLORPHENIRAMINE MALEATE\DEXTROMETHORPHAN HYDROBROMIDE\GUAIFENESIN\PHENYLEPHRINE HYDROCHLORIDE
  8. MELAXOSE [Concomitant]
     Active Substance: LACTULOSE\PARAFFIN
  9. ECONAZOLE. [Concomitant]
     Active Substance: ECONAZOLE NITRATE
  10. PARACETAMOL [Concomitant]
     Active Substance: ACETAMINOPHEN
  11. DIFFU K [Concomitant]
     Active Substance: POTASSIUM CHLORIDE
  12. SPASFON                            /00765801/ [Concomitant]
     Active Substance: PHLOROGLUCINOL\1,3,5-TRIMETHOXYBENZENE
  13. DEBRIDAT                           /00465201/ [Concomitant]
     Active Substance: TRIMEBUTINE MALEATE
  14. DIPROSALIC [Concomitant]
     Active Substance: BETAMETHASONE DIPROPIONATE
  15. OXYNORM [Suspect]
     Active Substance: OXYCODONE HYDROCHLORIDE
     Indication: PRODUCT USED FOR UNKNOWN INDICATION
     Dosage: 40 MG, DAILY (STRENGTH 10MG)
     Route: 048
  16. DUOTRAV [Concomitant]
     Active Substance: TIMOLOL MALEATE\TRAVOPROST
  17. CARBOSYMAG                         /01711301/ [Concomitant]
  18. INSULINE GLARGINE [Concomitant]
     Active Substance: INSULIN GLARGINE

REACTIONS (1)
  - Faecaloma [Recovered/Resolved]

NARRATIVE: CASE EVENT DATE: 20190414
